FAERS Safety Report 5024555-1 (Version None)
Quarter: 2006Q2

REPORT INFORMATION
  Report Type: 
  Country: None (occurrence: None)
  Receive Date: 20060607
  Receipt Date: 20060524
  Transmission Date: 20061013
  Serious: Yes (Other)
  Sender: FDA-Public Use
  Company Number: 2006068406

PATIENT

DRUGS (5)
  1. VFEND [Suspect]
     Indication: ILL-DEFINED DISORDER
     Dates: end: 20060524
  2. BACTRIM [Concomitant]
  3. CANCIDAS [Concomitant]
  4. ZERIT [Concomitant]
  5. DRUG (DRUG) [Concomitant]

REACTIONS (2)
  - CHOLESTASIS [None]
  - INCORRECT DOSE ADMINISTERED [None]
